FAERS Safety Report 6378092-2 (Version None)
Quarter: 2009Q3

REPORT INFORMATION
  Report Type: 
  Country: None (occurrence: None)
  Receive Date: 20090925
  Receipt Date: 20090921
  Transmission Date: 20100115
  Serious: Yes (Other)
  Sender: FDA-Public Use
  Company Number: US-RB-020392-09

PATIENT
  Age: 47 Year
  Sex: Male

DRUGS (3)
  1. SUBOXONE [Suspect]
     Route: 060
     Dates: start: 20090801, end: 20090901
  2. SUBOXONE [Suspect]
     Dosage: TAKING 16-20 MG DAILY
     Route: 060
     Dates: start: 20090428, end: 20090801
  3. SUBOXONE [Suspect]
     Dosage: CONSUMER TAKES VARIOUS DOSES.
     Route: 060
     Dates: start: 20090901

REACTIONS (3)
  - DEPRESSION [None]
  - FATIGUE [None]
  - SUICIDAL IDEATION [None]
